FAERS Safety Report 5605636-8 (Version None)
Quarter: 2008Q1

REPORT INFORMATION
  Report Type: 
  Country: None (occurrence: None)
  Receive Date: 20080123
  Receipt Date: 20080109
  Transmission Date: 20080703
  Serious: Yes (Hospitalization)
  Sender: FDA-Public Use
  Company Number: 2008BI001141

PATIENT
  Age: 42 Year
  Sex: Female

DRUGS (9)
  1. AVONEX [Suspect]
     Indication: RELAPSING-REMITTING MULTIPLE SCLEROSIS
     Dosage: 30 UG;QM;IM
     Route: 030
     Dates: start: 20070220
  2. DANTRIUM [Concomitant]
  3. LIORESAL [Concomitant]
  4. MECOBALAMIN [Concomitant]
  5. KETAS [Concomitant]
  6. SELBEX [Concomitant]
  7. CLONAZEPAM [Concomitant]
  8. FAMOTIDINE [Concomitant]
  9. ALOSENN [Concomitant]

REACTIONS (4)
  - CONDITION AGGRAVATED [None]
  - HEMIPLEGIA [None]
  - MULTIPLE SCLEROSIS [None]
  - NUCLEAR MAGNETIC RESONANCE IMAGING BRAIN ABNORMAL [None]
